FAERS Safety Report 17685904 (Version 1)
Quarter: 2020Q2

REPORT INFORMATION
  Report Type: Spontaneous
  Country: US (occurrence: US)
  Receive Date: 20200420
  Receipt Date: 20200420
  Transmission Date: 20200714
  Serious: No
  Sender: FDA-Public Use
  Company Number: US-ASTRAZENECA-2020SE50983

PATIENT

DRUGS (4)
  1. NOVOLIN RELION [Concomitant]
  2. GLUMETZA [Concomitant]
     Active Substance: METFORMIN HYDROCHLORIDE
  3. BYDUREON [Suspect]
     Active Substance: EXENATIDE
     Route: 065
  4. NOVOLIN N RELION [Concomitant]

REACTIONS (2)
  - Infection [Unknown]
  - Fungal infection [Unknown]
